FAERS Safety Report 4548626-9 (Version None)
Quarter: 2005Q1

REPORT INFORMATION
  Report Type: 
  Country: None (occurrence: None)
  Receive Date: 20050107
  Receipt Date: 20050107
  Transmission Date: 20050727
  Serious: Yes (Hospitalization)
  Sender: FDA-Public Use
  Company Number: None

PATIENT
  Age: 46 Year
  Sex: Female

DRUGS (1)
  1. SEASONALE [Suspect]
     Indication: MENSTRUATION IRREGULAR

REACTIONS (3)
  - DYSARTHRIA [None]
  - FACIAL PALSY [None]
  - ISCHAEMIC STROKE [None]
